FAERS Safety Report 5066282-0 (Version None)
Quarter: 2006Q3

REPORT INFORMATION
  Report Type: 
  Country: None (occurrence: None)
  Receive Date: 20060731
  Receipt Date: 20060731
  Transmission Date: 20061208
  Serious: Yes (Other)
  Sender: FDA-Public Use
  Company Number: None

PATIENT
  Age: 61 Year
  Sex: Male
  Weight: 67.1 kg

DRUGS (1)
  1. LAMUVIDINE 100MG GLAXOSMITHKLINE [Suspect]
     Indication: HEPATITIS B
     Dosage: 1 TABLET DAILY PO
     Route: 048

REACTIONS (1)
  - CONVULSION [None]
